FAERS Safety Report 13554974 (Version 1)
Quarter: 2017Q2

REPORT INFORMATION
  Report Type: Spontaneous
  Country: US (occurrence: US)
  Receive Date: 20170517
  Receipt Date: 20170517
  Transmission Date: 20170830
  Serious: Yes (Other)
  Sender: FDA-Public Use
  Company Number: None

PATIENT
  Age: 74 Year
  Sex: Male
  Weight: 65.25 kg

DRUGS (11)
  1. METHYLPREDNISOLONE. [Suspect]
     Active Substance: METHYLPREDNISOLONE
     Indication: PEMPHIGOID
     Dosage: QUANTITY:4 TABLET(S);OTHER FREQUENCY:SPREAD OVER THE DA;?
     Route: 048
  2. HAS (ANTI-HISTAMINE) [Concomitant]
  3. VITAMIN D3 [Concomitant]
     Active Substance: CHOLECALCIFEROL
  4. DRENATROPHIN [Concomitant]
  5. SLEEP HERBS [Concomitant]
  6. FLAXSEED [Concomitant]
     Active Substance: FLAX SEED
  7. MEDROL [Concomitant]
     Active Substance: METHYLPREDNISOLONE
  8. EMERGEN-C [Concomitant]
     Active Substance: VITAMINS
  9. PROTEOLYTIC ENZYMES [Concomitant]
  10. MILK THISTLE [Concomitant]
     Active Substance: MILK THISTLE
  11. PROBIOTICS [Concomitant]
     Active Substance: PROBIOTICS NOS

REACTIONS (7)
  - Product substitution issue [None]
  - Burning sensation [None]
  - Blister [None]
  - Condition aggravated [None]
  - Reaction to drug excipients [None]
  - Rash [None]
  - Pruritus [None]

NARRATIVE: CASE EVENT DATE: 20170511
